FAERS Safety Report 17646177 (Version 1)
Quarter: 2020Q2

REPORT INFORMATION
  Report Type: Spontaneous
  Country: NL (occurrence: NL)
  Receive Date: 20200408
  Receipt Date: 20200408
  Transmission Date: 20200713
  Serious: Yes (Other)
  Sender: FDA-Public Use
  Company Number: NL-TEVA-2020-NL-1220490

PATIENT
  Sex: Female
  Weight: 58 kg

DRUGS (3)
  1. DESLORATADINE. [Concomitant]
     Active Substance: DESLORATADINE
     Dosage: 5 MG (MILLIGRAM)
  2. OXAZEPAM. [Suspect]
     Active Substance: OXAZEPAM
     Indication: INSOMNIA
     Dosage: HALF OR A QUARTER AS NEEDED
     Dates: start: 201911
  3. OXAZEPAM. [Suspect]
     Active Substance: OXAZEPAM
     Indication: BURNOUT SYNDROME

REACTIONS (2)
  - Suicidal ideation [Recovered/Resolved]
  - Palpitations [Recovered/Resolved]
